FAERS Safety Report 7044064-8 (Version None)
Quarter: 2010Q4

REPORT INFORMATION
  Report Type: 
  Country: None (occurrence: None)
  Receive Date: 20101013
  Receipt Date: 20101006
  Transmission Date: 20110411
  Serious: Yes (Other)
  Sender: FDA-Public Use
  Company Number: AU-PFIZER INC-2010127044

PATIENT
  Sex: Female

DRUGS (2)
  1. ZOLOFT [Suspect]
     Dosage: 100 MG, 1X/DAY
  2. CARTIA XT [Concomitant]
     Dosage: UNK

REACTIONS (3)
  - EOSINOPHILIC PNEUMONIA [None]
  - HYPERSENSITIVITY [None]
  - MALAISE [None]
